FAERS Safety Report 24363905 (Version 2)
Quarter: 2024Q4

REPORT INFORMATION
  Report Type: Report from Study
  Country: US (occurrence: US)
  Receive Date: 20240925
  Receipt Date: 20241028
  Transmission Date: 20250115
  Serious: Yes (Other)
  Sender: MYLAN
  Company Number: US-MYLANLABS-2024M1086806

PATIENT
  Age: 52 Year
  Sex: Male
  Weight: 60.78 kg

DRUGS (1)
  1. TOBI [Suspect]
     Active Substance: TOBRAMYCIN
     Indication: Product used for unknown indication
     Dosage: BID (TWO TIMES A DAY, 1 MONTH ON, 1 MONTH OFF))
     Route: 065
     Dates: start: 20230810, end: 20240627

REACTIONS (5)
  - Neoplasm malignant [Unknown]
  - Ear disorder [Recovered/Resolved]
  - Renal disorder [Unknown]
  - Hypoacusis [Unknown]
  - Epistaxis [Unknown]

NARRATIVE: CASE EVENT DATE: 20240801
